FAERS Safety Report 6257324-5 (Version None)
Quarter: 2009Q3

REPORT INFORMATION
  Report Type: 
  Country: None (occurrence: None)
  Receive Date: 20090701
  Receipt Date: 20090701
  Transmission Date: 20100115
  Serious: No
  Sender: FDA-Public Use
  Company Number: None

PATIENT
  Sex: Male
  Weight: 76.6579 kg

DRUGS (1)
  1. AZITHROMYCIN [Suspect]
     Dosage: 1 DAILY
     Dates: start: 20090217, end: 20090221

REACTIONS (2)
  - AGEUSIA [None]
  - ANOSMIA [None]
